FAERS Safety Report 10260927 (Version 1)
Quarter: 2014Q2

REPORT INFORMATION
  Report Type: Spontaneous
  Country: TW (occurrence: None)
  Receive Date: 20140623
  Receipt Date: 20140623
  Transmission Date: 20141212
  Serious: Yes (Hospitalization)
  Sender: FDA-Public Use
  Company Number: 2014TW00571

PATIENT
  Age: 62 Year
  Sex: Male

DRUGS (5)
  1. RISPERIDONE (RISPERIDONE) TABLET [Suspect]
     Indication: BIPOLAR II DISORDER
     Dosage: ON DAY 11
  2. LAMOTRIGINE (LAMOTRIGINE) TABLET [Suspect]
     Indication: BIPOLAR II DISORDER
  3. BUPROPION (BUPROPION) [Suspect]
     Indication: BIPOLAR II DISORDER
  4. QUETIAPINE (QUETIAPINE) [Suspect]
     Indication: HALLUCINATION, AUDITORY
     Dosage: DAY ON DAY 8
  5. QUETIAPINE (QUETIAPINE) [Suspect]
     Indication: INSOMNIA
     Dosage: DAY ON DAY 8

REACTIONS (5)
  - Delirium [None]
  - Drug interaction [None]
  - Confusional state [None]
  - Disorientation [None]
  - Agitation [None]
